FAERS Safety Report 8197097-2 (Version None)
Quarter: 2012Q1

REPORT INFORMATION
  Report Type: 
  Country: None (occurrence: None)
  Receive Date: 20120309
  Receipt Date: 20120301
  Transmission Date: 20120608
  Serious: Yes (Other)
  Sender: FDA-Public Use
  Company Number: US-ASTELLAS-2012US002119

PATIENT

DRUGS (3)
  1. CORTICOSTEROID NOS [Suspect]
     Indication: PSORIASIS
     Dosage: UNK
     Route: 065
  2. PROTOPIC [Suspect]
     Indication: PSORIASIS
     Dosage: 0.1 %, UNKNOWN/D
     Route: 061
  3. PROTOPIC [Suspect]
     Indication: BURNS SECOND DEGREE
     Dosage: 0.03 %, UNKNOWN/D
     Route: 061
     Dates: start: 20120127

REACTIONS (18)
  - OFF LABEL USE [None]
  - RESPIRATORY DISORDER [None]
  - BURN INFECTION [None]
  - EYE DISORDER [None]
  - WEIGHT INCREASED [None]
  - BURNS THIRD DEGREE [None]
  - CORONARY ARTERY OCCLUSION [None]
  - PSORIASIS [None]
  - APPLICATION SITE PAIN [None]
  - INTERVERTEBRAL DISC PROTRUSION [None]
  - FALL [None]
  - PSORIATIC ARTHROPATHY [None]
  - APPLICATION SITE ERYTHEMA [None]
  - CONDITION AGGRAVATED [None]
  - INSOMNIA [None]
  - HAEMATOMA [None]
  - SKIN DISCOLOURATION [None]
  - DRUG INEFFECTIVE FOR UNAPPROVED INDICATION [None]
